FAERS Safety Report 12305860 (Version 4)
Quarter: 2018Q1

REPORT INFORMATION
  Report Type: Spontaneous
  Country: US (occurrence: US)
  Receive Date: 20160426
  Receipt Date: 20180105
  Transmission Date: 20180508
  Serious: Yes (Death)
  Sender: FDA-Public Use
  Company Number: US-ASTRAZENECA-2016SE41332

PATIENT
  Age: 24612 Day
  Sex: Female

DRUGS (8)
  1. TAGRISSO [Suspect]
     Active Substance: OSIMERTINIB
     Indication: NON-SMALL CELL LUNG CANCER
     Route: 048
     Dates: start: 20160401
  2. OMEPRAZOLE. [Suspect]
     Active Substance: OMEPRAZOLE
     Dosage: 20.0MG UNKNOWN
     Route: 048
  3. TAGRISSO [Suspect]
     Active Substance: OSIMERTINIB
     Indication: LUNG CARCINOMA CELL TYPE UNSPECIFIED STAGE I
     Route: 048
     Dates: start: 20160402
  4. TAGRISSO [Suspect]
     Active Substance: OSIMERTINIB
     Indication: LUNG CARCINOMA CELL TYPE UNSPECIFIED STAGE I
     Route: 048
     Dates: start: 20160401
  5. TAGRISSO [Suspect]
     Active Substance: OSIMERTINIB
     Indication: NON-SMALL CELL LUNG CANCER
     Route: 048
     Dates: end: 20171210
  6. TAGRISSO [Suspect]
     Active Substance: OSIMERTINIB
     Indication: NON-SMALL CELL LUNG CANCER
     Route: 048
     Dates: start: 20160402
  7. TAGRISSO [Suspect]
     Active Substance: OSIMERTINIB
     Indication: LUNG CARCINOMA CELL TYPE UNSPECIFIED STAGE I
     Route: 048
     Dates: end: 20171210
  8. TYLENOL [Concomitant]
     Active Substance: ACETAMINOPHEN
     Dosage: 325.0MG UNKNOWN

REACTIONS (4)
  - Dyspnoea [Unknown]
  - Death [Fatal]
  - Dry skin [Unknown]
  - Pruritus [Unknown]

NARRATIVE: CASE EVENT DATE: 20160420
